FAERS Safety Report 7530212-X (Version None)
Quarter: 2011Q2

REPORT INFORMATION
  Report Type: 
  Country: None (occurrence: None)
  Receive Date: 20110607
  Receipt Date: 20110601
  Transmission Date: 20111010
  Serious: Yes (Other)
  Sender: FDA-Public Use
  Company Number: GXKR2011DE01919

PATIENT
  Sex: Male

DRUGS (1)
  1. LOSARTAN POTASSIUM [Suspect]
     Dosage: UNK UKN, UNK
     Route: 048
     Dates: start: 20100801

REACTIONS (2)
  - VESTIBULAR DISORDER [None]
  - DIZZINESS [None]
